FAERS Safety Report 8334662-3 (Version None)
Quarter: 2012Q2

REPORT INFORMATION
  Report Type: 
  Country: None (occurrence: None)
  Receive Date: 20120503
  Receipt Date: 20120423
  Transmission Date: 20120825
  Serious: Yes (Hospitalization, Other)
  Sender: FDA-Public Use
  Company Number: US-MERCK-1002USA03429

PATIENT
  Age: 56 Year
  Sex: Female
  Weight: 64 kg

DRUGS (2)
  1. FOSAMAX [Suspect]
     Indication: OSTEOPENIA
     Route: 048
     Dates: start: 20010714, end: 20081001
  2. FOSAMAX [Suspect]
     Indication: OSTEOPOROSIS
     Route: 048
     Dates: start: 20010714, end: 20081001

REACTIONS (33)
  - OBSTRUCTIVE UROPATHY [None]
  - AORTIC ARTERIOSCLEROSIS [None]
  - NECROSIS [None]
  - JAW CYST [None]
  - CRANIOCEREBRAL INJURY [None]
  - ANAEMIA POSTOPERATIVE [None]
  - INTERSTITIAL LUNG DISEASE [None]
  - POST-TRAUMATIC STRESS DISORDER [None]
  - HYPERCALCAEMIA [None]
  - THYROID CYST [None]
  - TOOTH DISORDER [None]
  - THYROID DISORDER [None]
  - DEHYDRATION [None]
  - HYPERKALAEMIA [None]
  - RENAL CYST [None]
  - HYPERPARATHYROIDISM [None]
  - THYROID NEOPLASM [None]
  - CONSTIPATION [None]
  - PANCREATITIS [None]
  - GLUCOSE TOLERANCE IMPAIRED [None]
  - HYDRONEPHROSIS [None]
  - SUBMANDIBULAR MASS [None]
  - NEOPLASM [None]
  - BONE LOSS [None]
  - FEMUR FRACTURE [None]
  - ADENOMA BENIGN [None]
  - LOOSE TOOTH [None]
  - HYPERTENSION [None]
  - TOOTH INFECTION [None]
  - DENTAL CARIES [None]
  - CONTUSION [None]
  - NEPHROLITHIASIS [None]
  - FALL [None]
